FAERS Safety Report 4683120-6 (Version None)
Quarter: 2005Q2

REPORT INFORMATION
  Report Type: 
  Country: None (occurrence: None)
  Receive Date: 20050602
  Receipt Date: 20050329
  Transmission Date: 20051028
  Serious: No
  Sender: FDA-Public Use
  Company Number: USA050394406

PATIENT
  Age: 32 Year
  Sex: Female

DRUGS (2)
  1. CYMBALTA [Suspect]
     Indication: BIPOLAR DISORDER
     Dosage: 60 MG DAY
     Dates: start: 20050301
  2. ADDERALL XR 15 [Concomitant]

REACTIONS (7)
  - ABNORMAL BEHAVIOUR [None]
  - ACTIVITIES OF DAILY LIVING IMPAIRED [None]
  - DRUG INEFFECTIVE [None]
  - FATIGUE [None]
  - HOSTILITY [None]
  - INFLUENZA [None]
  - MIDDLE EAR EFFUSION [None]
